FAERS Safety Report 4416760-X (Version None)
Quarter: 2004Q3

REPORT INFORMATION
  Report Type: 
  Country: None (occurrence: None)
  Receive Date: 20040802
  Receipt Date: 20040722
  Transmission Date: 20050211
  Serious: Yes (Hospitalization)
  Sender: FDA-Public Use
  Company Number: DEWYE923122JUL04

PATIENT
  Age: 59 Year
  Sex: Female

DRUGS (4)
  1. VENLAFAXINE HCL [Suspect]
     Indication: DEPRESSION
     Dosage: 75 MG 1X PER 1 DAY ORAL
     Route: 048
     Dates: start: 20031201
  2. ACTOS [Suspect]
     Dosage: 30 MG 1X PER 1 DAY ORAL
     Route: 048
     Dates: start: 20030701, end: 20040411
  3. METFORMIN HYDROCHLORIDE [Concomitant]
  4. RUDOTEL (MEDAZEPAM) [Concomitant]

REACTIONS (12)
  - ARTHRALGIA [None]
  - BLISTER [None]
  - BLOOD CALCIUM DECREASED [None]
  - CHEST PAIN [None]
  - DRUG INTERACTION [None]
  - GRANULOMA ANNULARE [None]
  - HEPATITIS A [None]
  - PAIN [None]
  - PERIPHERAL COLDNESS [None]
  - SECRETION DISCHARGE [None]
  - SKIN HYPERTROPHY [None]
  - TENSION [None]
